FAERS Safety Report 7071897-4 (Version None)
Quarter: 2010Q4

REPORT INFORMATION
  Report Type: 
  Country: None (occurrence: None)
  Receive Date: 20101029
  Receipt Date: 20091201
  Transmission Date: 20110411
  Serious: No
  Sender: FDA-Public Use
  Company Number: A0814393A

PATIENT
  Age: 83 Year
  Sex: Female

DRUGS (5)
  1. ADVAIR DISKUS 100/50 [Suspect]
     Indication: INFLAMMATION
     Dosage: 1PUFF TWICE PER DAY
     Route: 055
     Dates: start: 20050101
  2. CLONIDINE [Concomitant]
  3. POTASSIUM CHLORIDE [Concomitant]
  4. FUROSEMIDE [Concomitant]
  5. DIAVAN [Concomitant]

REACTIONS (4)
  - COUGH [None]
  - DECREASED APPETITE [None]
  - SECRETION DISCHARGE [None]
  - SPUTUM DISCOLOURED [None]
